FAERS Safety Report 11703464 (Version 1)
Quarter: 2015Q4

REPORT INFORMATION
  Report Type: Spontaneous
  Country: US (occurrence: US)
  Receive Date: 20151105
  Receipt Date: 20151105
  Transmission Date: 20160304
  Serious: No
  Sender: FDA-Public Use
  Company Number: US-ANACOR-2015ANA00130

PATIENT
  Sex: Male

DRUGS (2)
  1. KERYDIN [Suspect]
     Active Substance: TAVABOROLE
     Dosage: UNK
  2. KERYDIN [Suspect]
     Active Substance: TAVABOROLE
     Dosage: UNK, 3X/DAY

REACTIONS (3)
  - Inappropriate schedule of drug administration [Recovered/Resolved]
  - Malaise [Recovering/Resolving]
  - Furuncle [Recovering/Resolving]
